FAERS Safety Report 12278106 (Version 6)
Quarter: 2017Q3

REPORT INFORMATION
  Report Type: Report from Study
  Country: US (occurrence: US)
  Receive Date: 20160418
  Receipt Date: 20170926
  Transmission Date: 20171127
  Serious: Yes (Other)
  Sender: FDA-Public Use
  Company Number: PHHY2015US157890

PATIENT
  Age: 26 Year
  Sex: Female

DRUGS (1)
  1. GILENYA [Suspect]
     Active Substance: FINGOLIMOD HYDROCHLORIDE
     Indication: MULTIPLE SCLEROSIS
     Dosage: UNK UNK, QD
     Route: 048
     Dates: end: 20160901

REACTIONS (13)
  - Lymphopenia [Unknown]
  - Dysphagia [Unknown]
  - Anxiety [Unknown]
  - Viral infection [Recovered/Resolved]
  - Throat irritation [Recovered/Resolved]
  - Muscle spasms [Unknown]
  - Headache [Recovered/Resolved]
  - Muscular weakness [Unknown]
  - Leukopenia [Recovered/Resolved]
  - Injection site pain [Unknown]
  - Paraesthesia [Recovered/Resolved]
  - Neck pain [Unknown]
  - Paraesthesia [Unknown]

NARRATIVE: CASE EVENT DATE: 20151113
